FAERS Safety Report 11586495 (Version 1)
Quarter: 2015Q3

REPORT INFORMATION
  Report Type: Spontaneous
  Country: US (occurrence: US)
  Receive Date: 20150916
  Receipt Date: 20150916
  Transmission Date: 20151125
  Serious: No
  Sender: FDA-Public Use
  Company Number: US-ELI_LILLY_AND_COMPANY-US200803001652

PATIENT
  Age: 78 Year
  Sex: Female

DRUGS (3)
  1. CALCIUM [Concomitant]
     Active Substance: CALCIUM
  2. FORTEO [Suspect]
     Active Substance: TERIPARATIDE
     Dates: start: 20070810
  3. FORTEO [Suspect]
     Active Substance: TERIPARATIDE
     Indication: OSTEOPOROSIS
     Dosage: UNK, UNK
     Dates: start: 20070425, end: 20070724

REACTIONS (3)
  - Joint swelling [Not Recovered/Not Resolved]
  - Fall [Not Recovered/Not Resolved]
  - Patella fracture [Not Recovered/Not Resolved]

NARRATIVE: CASE EVENT DATE: 20080111
